FAERS Safety Report 5426863-9 (Version None)
Quarter: 2007Q3

REPORT INFORMATION
  Report Type: 
  Country: None (occurrence: None)
  Receive Date: 20070827
  Receipt Date: 20070823
  Transmission Date: 20080115
  Serious: Yes (Other)
  Sender: FDA-Public Use
  Company Number: JP-BOEHRINGER INGELHEIM PHARMACEUTICALS, INC.-2007-DE-04987GD

PATIENT

DRUGS (4)
  1. DIPYRIDAMOLE [Suspect]
     Indication: GLOMERULONEPHRITIS PROLIFERATIVE
     Dosage: 5 MG/KG (MAXIMUM 400 MG/D)
     Route: 048
  2. PREDNISOLONE [Suspect]
     Indication: GLOMERULONEPHRITIS PROLIFERATIVE
     Dosage: 2 MG/KG (MAX. 80 MG) EVERY DAY IN 3 DIVIDED DOSES FOR 4 WK, FOLLOWED BY 2 MG/KG EVERY 2 D (SINGLE DO
     Route: 048
  3. AZATHIOPRINE [Suspect]
     Indication: GLOMERULONEPHRITIS PROLIFERATIVE
     Route: 048
  4. WARFARIN SODIUM [Suspect]
     Indication: GLOMERULONEPHRITIS PROLIFERATIVE

REACTIONS (1)
  - OSTEONECROSIS [None]
